FAERS Safety Report 7200448-6 (Version None)
Quarter: 2010Q4

REPORT INFORMATION
  Report Type: 
  Country: None (occurrence: None)
  Receive Date: 20101214
  Receipt Date: 20101129
  Transmission Date: 20110411
  Serious: Yes (Other)
  Sender: FDA-Public Use
  Company Number: DSJ-2010-21048

PATIENT
  Age: 45 Year
  Sex: Male

DRUGS (6)
  1. OLMETEC (OLMESARTAN MEDOXOMIL) (TABLET) (OLMESARTAN MEDOXOMIL) [Suspect]
     Indication: PRODUCT USED FOR UNKNOWN INDICATION
     Dosage: 20 MG, NASAL
     Route: 045
  2. CALBLOCK (AZELNIDIPINE) (TABLET) (AZELNIDIPINE) [Suspect]
     Indication: PRODUCT USED FOR UNKNOWN INDICATION
     Dosage: 16 MG, NASAL
     Route: 045
  3. VOLTAREN [Suspect]
     Indication: PYREXIA
     Dosage: 50 MG, RECTAL
     Route: 054
  4. NICARDIPINE HCL [Suspect]
     Indication: HYPERTENSION
  5. THIAMYLAL (THIAMYLAL) (THIAMYLAL) [Concomitant]
  6. PHENOBAL (PHENOBARBITAL) (PHENOBARBITAL) [Concomitant]

REACTIONS (9)
  - BLOOD PRESSURE DECREASED [None]
  - CONVULSION [None]
  - DRUG INTERACTION [None]
  - PUPILS UNEQUAL [None]
  - PYREXIA [None]
  - RENAL FAILURE ACUTE [None]
  - SUBARACHNOID HAEMORRHAGE [None]
  - SUBDURAL HAEMATOMA [None]
  - URINARY INCONTINENCE [None]
